FAERS Safety Report 6154856-5 (Version None)
Quarter: 2009Q2

REPORT INFORMATION
  Report Type: 
  Country: None (occurrence: None)
  Receive Date: 20090414
  Receipt Date: 20090402
  Transmission Date: 20091009
  Serious: Yes (Other)
  Sender: FDA-Public Use
  Company Number: FR-PFIZER INC-2009192917

PATIENT

DRUGS (2)
  1. CHAMPIX [Suspect]
     Indication: SMOKING CESSATION THERAPY
     Dosage: UNK
  2. INSULIN [Concomitant]
     Indication: DIABETES MELLITUS
     Dosage: 2 G/L, 4X/DAY

REACTIONS (1)
  - HYPERGLYCAEMIA [None]
